FAERS Safety Report 10862197 (Version 1)
Quarter: 2015Q1

REPORT INFORMATION
  Report Type: Report from Study
  Country: US (occurrence: US)
  Receive Date: 20150224
  Receipt Date: 20150224
  Transmission Date: 20150721
  Serious: Yes (Other)
  Sender: FDA-Public Use
  Company Number: US-SA-2013SA104966

PATIENT
  Age: 60 Year
  Sex: Female

DRUGS (3)
  1. AUBAGIO [Suspect]
     Active Substance: TERIFLUNOMIDE
     Indication: MULTIPLE SCLEROSIS
     Route: 048
     Dates: start: 20131004
  2. SOLU-MEDROL [Concomitant]
     Active Substance: METHYLPREDNISOLONE SODIUM SUCCINATE
  3. PREDNISONE. [Concomitant]
     Active Substance: PREDNISONE

REACTIONS (11)
  - Optic neuritis [Recovering/Resolving]
  - Abdominal discomfort [Not Recovered/Not Resolved]
  - Acne [Unknown]
  - Neuropathy peripheral [Not Recovered/Not Resolved]
  - Pain [Recovering/Resolving]
  - Skin disorder [Unknown]
  - Visual acuity reduced [Recovering/Resolving]
  - Therapeutic response unexpected [Unknown]
  - Headache [Not Recovered/Not Resolved]
  - Colour blindness acquired [Recovering/Resolving]
  - Exostosis [Unknown]

NARRATIVE: CASE EVENT DATE: 20131008
